FAERS Safety Report 8848372 (Version 2)
Quarter: 2012Q4

REPORT INFORMATION
  Report Type: 
  Country: AU (occurrence: AU)
  Receive Date: 20121018
  Receipt Date: 20121108
  Transmission Date: 20130627
  Serious: Yes (Hospitalization, Other)
  Sender: FDA-Public Use
  Company Number: PHHY2012AU092260

PATIENT
  Sex: Male

DRUGS (2)
  1. CLOZARIL [Suspect]
     Dosage: 250 mg
     Dates: start: 20031027
  2. CLOZARIL [Suspect]
     Dosage: 150 mg
     Dates: start: 20121105

REACTIONS (4)
  - Schizophrenia [Unknown]
  - Psychotic disorder [Unknown]
  - Stress [Unknown]
  - Antipsychotic drug level below therapeutic [Unknown]
